FAERS Safety Report 6781657-7 (Version None)
Quarter: 2010Q2

REPORT INFORMATION
  Report Type: 
  Country: None (occurrence: None)
  Receive Date: 20100621
  Receipt Date: 20100616
  Transmission Date: 20101027
  Serious: Yes (Other)
  Sender: FDA-Public Use
  Company Number: CHPA2010US10130

PATIENT
  Age: 84 Year
  Sex: Female
  Weight: 61.224 kg

DRUGS (3)
  1. BENEFIBER W/ WHEAT DEXTRIN (NCH) [Suspect]
     Indication: NUTRITIONAL SUPPORT
     Dosage: UNDER 1 TSP,UNK
     Route: 048
     Dates: start: 20080101
  2. VITAMIN C [Concomitant]
     Indication: VITAMIN C
     Dosage: UNK
     Route: 048
  3. CALCIUM CARBONATE [Concomitant]
     Indication: BLOOD CALCIUM
     Route: 048

REACTIONS (7)
  - ABDOMINAL PAIN UPPER [None]
  - ANXIETY [None]
  - DIARRHOEA [None]
  - HERPES ZOSTER [None]
  - HIATUS HERNIA [None]
  - IRRITABLE BOWEL SYNDROME [None]
  - SKIN CANCER [None]
